FAERS Safety Report 18713858 (Version 2)
Quarter: 2022Q4

REPORT INFORMATION
  Report Type: Spontaneous
  Country: FR (occurrence: FR)
  Receive Date: 20210107
  Receipt Date: 20221107
  Transmission Date: 20230113
  Serious: Yes (Other)
  Sender: FDA-Public Use
  Company Number: None

PATIENT
  Age: 62 Year
  Sex: Male
  Weight: 70 kg

DRUGS (4)
  1. CETIRIZINE HYDROCHLORIDE [Suspect]
     Active Substance: CETIRIZINE HYDROCHLORIDE
     Indication: Prophylaxis
     Dosage: UNK
     Route: 048
     Dates: start: 20201110, end: 20201110
  2. ACETAMINOPHEN [Suspect]
     Active Substance: ACETAMINOPHEN
     Indication: Prophylaxis
     Dosage: 500 MG, QD
     Route: 048
     Dates: start: 20201110, end: 20201110
  3. POLARAMINE [Suspect]
     Active Substance: DEXCHLORPHENIRAMINE MALEATE
     Indication: Prophylaxis
     Dosage: 5 MG, QD
     Route: 042
     Dates: start: 20201110, end: 20201110
  4. FAMOTIDINE [Suspect]
     Active Substance: FAMOTIDINE
     Indication: Prophylaxis
     Dosage: 40 MG, QD
     Route: 048
     Dates: start: 20201110, end: 20201110

REACTIONS (4)
  - Hypotension [Recovered/Resolved]
  - Tinnitus [Recovered/Resolved]
  - Asthenia [Recovered/Resolved]
  - Headache [Recovered/Resolved]

NARRATIVE: CASE EVENT DATE: 20201113
